FAERS Safety Report 23577396 (Version 2)
Quarter: 2024Q1

REPORT INFORMATION
  Report Type: Spontaneous
  Country: IT (occurrence: IT)
  Receive Date: 20240228
  Receipt Date: 20240307
  Transmission Date: 20240410
  Serious: Yes (Death, Hospitalization, Other)
  Sender: FDA-Public Use
  Company Number: None

PATIENT
  Age: 51 Year
  Sex: Male

DRUGS (8)
  1. TECARTUS [Suspect]
     Active Substance: BREXUCABTAGENE AUTOLEUCEL
     Indication: Mantle cell lymphoma
     Route: 042
     Dates: start: 20231121, end: 20231121
  2. BACTRIM [Concomitant]
     Active Substance: SULFAMETHOXAZOLE\TRIMETHOPRIM
  3. POSACONAZOLO MYLAN [Concomitant]
  4. LEVETIRACETAM [Concomitant]
     Active Substance: LEVETIRACETAM
  5. TAMSULOSIN [Concomitant]
     Active Substance: TAMSULOSIN
  6. ACYCLOVIR [Concomitant]
     Active Substance: ACYCLOVIR
  7. FINASTERIDE [Concomitant]
     Active Substance: FINASTERIDE
  8. FEBUXOSTAT [Concomitant]
     Active Substance: FEBUXOSTAT

REACTIONS (5)
  - Disease progression [Fatal]
  - Pancytopenia [Not Recovered/Not Resolved]
  - Immune effector cell-associated neurotoxicity syndrome [Recovered/Resolved]
  - Cytokine release syndrome [Recovered/Resolved]
  - Drug ineffective [Not Recovered/Not Resolved]

NARRATIVE: CASE EVENT DATE: 20231123
